FAERS Safety Report 17985981 (Version 1)
Quarter: 2020Q3

REPORT INFORMATION
  Report Type: Report from Study
  Country: US (occurrence: US)
  Receive Date: 20200707
  Receipt Date: 20200707
  Transmission Date: 20201103
  Serious: Yes (Other)
  Sender: FDA-Public Use
  Company Number: US-BEH-2020119584

PATIENT
  Age: 46 Year
  Sex: Female

DRUGS (1)
  1. HIZENTRA [Suspect]
     Active Substance: HUMAN IMMUNOGLOBULIN G
     Indication: CHRONIC INFLAMMATORY DEMYELINATING POLYRADICULONEUROPATHY
     Dosage: 50 MILLIGRAM, QW
     Route: 058
     Dates: start: 20200624

REACTIONS (7)
  - Agitation [Unknown]
  - Dystonia [Unknown]
  - Irritability [Unknown]
  - Brain injury [Unknown]
  - Chills [Unknown]
  - Anger [Unknown]
  - Dysphemia [Unknown]

NARRATIVE: CASE EVENT DATE: 20200624
